FAERS Safety Report 9343461 (Version 3)
Quarter: 2013Q3

REPORT INFORMATION
  Report Type: Spontaneous
  Country: US (occurrence: US)
  Receive Date: 20130612
  Receipt Date: 20130828
  Transmission Date: 20140515
  Serious: No
  Sender: FDA-Public Use
  Company Number: US-BIOGENIDEC-2013BI052085

PATIENT
  Age: 37 Year
  Sex: Female

DRUGS (1)
  1. TYSABRI [Suspect]
     Indication: MULTIPLE SCLEROSIS
     Route: 042
     Dates: start: 20120907, end: 20130530

REACTIONS (16)
  - Blindness [Recovered/Resolved]
  - Abasia [Unknown]
  - Migraine [Unknown]
  - Impaired gastric emptying [Unknown]
  - Pain in extremity [Unknown]
  - Bipolar disorder [Unknown]
  - Memory impairment [Unknown]
  - Pain [Not Recovered/Not Resolved]
  - Musculoskeletal discomfort [Not Recovered/Not Resolved]
  - Eye disorder [Unknown]
  - Vomiting [Unknown]
  - Multiple sclerosis [Unknown]
  - Headache [Unknown]
  - Arthralgia [Unknown]
  - Asthenia [Unknown]
  - Malaise [Unknown]
